FAERS Safety Report 14244333 (Version 15)
Quarter: 2019Q2

REPORT INFORMATION
  Report Type: Spontaneous
  Country: NL (occurrence: NL)
  Receive Date: 20171201
  Receipt Date: 20190401
  Transmission Date: 20190711
  Serious: Yes (Hospitalization, Disabling, Other)
  Sender: FDA-Public Use
  Company Number: NL-PFIZER INC-2017512671

PATIENT
  Age: 61 Year
  Sex: Female

DRUGS (5)
  1. ANASTROZOLE. [Concomitant]
     Active Substance: ANASTROZOLE
     Indication: AROMATASE INHIBITION THERAPY
  2. ANASTROZOLE. [Concomitant]
     Active Substance: ANASTROZOLE
     Indication: HORMONE THERAPY
     Dosage: UNK
  3. IMMUNOGLOBULIN HUMAN NORMAL [Concomitant]
     Active Substance: HUMAN IMMUNOGLOBULIN G
     Indication: CHRONIC INFLAMMATORY DEMYELINATING POLYRADICULONEUROPATHY
     Dosage: 1 DF, 3X/WEEK
     Route: 042
  4. ZOLEDRONIC ACID [Suspect]
     Active Substance: ZOLEDRONIC ACID
     Indication: ADJUVANT THERAPY
     Dosage: UNK
     Route: 042
  5. ANASTROZOLE. [Concomitant]
     Active Substance: ANASTROZOLE
     Indication: BREAST CANCER

REACTIONS (18)
  - Acute phase reaction [Recovering/Resolving]
  - Dysaesthesia [Not Recovered/Not Resolved]
  - Chills [Recovered/Resolved]
  - Fatigue [Recovered/Resolved]
  - Myalgia [Recovered/Resolved]
  - Chronic inflammatory demyelinating polyradiculoneuropathy [Recovering/Resolving]
  - Red blood cell sedimentation rate increased [Recovered/Resolved]
  - Mobility decreased [Recovering/Resolving]
  - Paraesthesia [Unknown]
  - Romberg test positive [Unknown]
  - C-reactive protein increased [Recovered/Resolved]
  - Gait disturbance [Recovering/Resolving]
  - Paresis [Recovering/Resolving]
  - Areflexia [Recovering/Resolving]
  - Decreased vibratory sense [Recovering/Resolving]
  - Headache [Recovered/Resolved]
  - Disease recurrence [Recovering/Resolving]
  - Somnolence [Unknown]
